FAERS Safety Report 9372866 (Version 2)
Quarter: 2013Q3

REPORT INFORMATION
  Report Type: Spontaneous
  Country: EE (occurrence: EE)
  Receive Date: 20130627
  Receipt Date: 20130729
  Transmission Date: 20140515
  Serious: Yes (Other)
  Sender: FDA-Public Use
  Company Number: PHHY2013EE059302

PATIENT
  Age: 21 Year
  Sex: Female

DRUGS (14)
  1. TOBI PODHALER [Suspect]
     Indication: CYSTIC FIBROSIS
     Dosage: UNK
     Dates: start: 2008, end: 2010
  2. TOBI PODHALER [Suspect]
     Dosage: 224 MG, UNK
     Dates: start: 201210, end: 20130604
  3. TOBRAMYCIN [Suspect]
     Indication: CYSTIC FIBROSIS
     Dosage: UNK
     Dates: start: 2011
  4. PULMOZYME [Concomitant]
     Indication: CYSTIC FIBROSIS
     Dosage: UNK
  5. VENTOLINE [Concomitant]
     Indication: CYSTIC FIBROSIS
     Dosage: UNK
  6. KREON [Concomitant]
     Indication: CYSTIC FIBROSIS
     Dosage: 1000/18000 U, PRN BEFORE MEAL
     Route: 048
  7. ACETYLCYSTEIN [Concomitant]
     Indication: CYSTIC FIBROSIS
     Dosage: 150 MG, BID
  8. LEVEMIR [Concomitant]
     Dosage: 4,IU, ONCE A DAY
  9. D VITAMIINI [Concomitant]
     Indication: CYSTIC FIBROSIS
     Dosage: 80 UG,ONCE DAILY
     Route: 048
  10. A-VITAMIN [Concomitant]
     Dosage: UNK
  11. E VITAMIN [Concomitant]
     Dosage: UNK
  12. CALCIGRAN [Concomitant]
     Indication: CYSTIC FIBROSIS
     Dosage: 500/400 U, BID
     Route: 048
  13. EDNYT [Concomitant]
     Indication: HYPERTENSION
     Dosage: 2.5 MG, ONCE A DAY
  14. COLISTIN [Concomitant]
     Indication: CYSTIC FIBROSIS
     Dosage: 1000000 U, BID

REACTIONS (6)
  - Type 1 diabetes mellitus [Unknown]
  - Type I hypersensitivity [Unknown]
  - Bronchospasm [Recovered/Resolved]
  - Asthma [Unknown]
  - Wheezing [Unknown]
  - Dyspnoea [Unknown]
